FAERS Safety Report 10357957 (Version 1)
Quarter: 2014Q3

REPORT INFORMATION
  Report Type: Spontaneous
  Country: CA (occurrence: CA)
  Receive Date: 20140801
  Receipt Date: 20140801
  Transmission Date: 20150326
  Serious: Yes (Other)
  Sender: FDA-Public Use
  Company Number: CA-BRISTOL-MYERS SQUIBB COMPANY-21264106

PATIENT
  Age: 58 Year
  Sex: Female
  Weight: 58.05 kg

DRUGS (1)
  1. ABATACEPT SUBQ INJECTION 125MG/ML [Suspect]
     Active Substance: ABATACEPT
     Indication: RHEUMATOID ARTHRITIS
     Dosage: 1 DF= 125 MG/ML
     Route: 058
     Dates: start: 201405

REACTIONS (2)
  - Face oedema [Recovered/Resolved]
  - Arthropathy [Unknown]
